FAERS Safety Report 7951805-1 (Version None)
Quarter: 2011Q4

REPORT INFORMATION
  Report Type: 
  Country: None (occurrence: None)
  Receive Date: 20111201
  Receipt Date: 20111122
  Transmission Date: 20120403
  Serious: Yes (Hospitalization)
  Sender: FDA-Public Use
  Company Number: JP-SANOFI-AVENTIS-2011SA051091

PATIENT
  Age: 61 Year
  Sex: Female
  Weight: 64 kg

DRUGS (10)
  1. XELODA [Concomitant]
     Indication: RECTAL CANCER
     Route: 048
     Dates: start: 20110226
  2. XELODA [Concomitant]
     Route: 048
     Dates: start: 20110610, end: 20110715
  3. DEXAMETHASONE SODIUM PHOSPHATE [Concomitant]
     Route: 041
     Dates: start: 20110610, end: 20110722
  4. KYTRIL [Concomitant]
     Indication: PREMEDICATION
     Route: 041
     Dates: start: 20100226
  5. DEXAMETHASONE SODIUM PHOSPHATE [Concomitant]
     Indication: PREMEDICATION
     Route: 041
     Dates: start: 20100226
  6. OXALIPLATIN [Suspect]
     Indication: LARGE INTESTINE CARCINOMA
     Dosage: CYCLE 1-2
     Route: 041
     Dates: start: 20110610, end: 20110722
  7. XELODA [Concomitant]
     Route: 048
     Dates: start: 20110610, end: 20110715
  8. KYTRIL [Concomitant]
     Route: 041
     Dates: start: 20110610, end: 20110722
  9. XELODA [Concomitant]
     Indication: LARGE INTESTINE CARCINOMA
     Route: 048
     Dates: start: 20110226
  10. AVASTIN [Suspect]
     Indication: LARGE INTESTINE CARCINOMA
     Route: 041
     Dates: start: 20110610, end: 20110722

REACTIONS (4)
  - HYPERTENSION [None]
  - CHILLS [None]
  - PYREXIA [None]
  - ANAPHYLACTOID REACTION [None]
